FAERS Safety Report 7248761-0 (Version None)
Quarter: 2011Q1

REPORT INFORMATION
  Report Type: 
  Country: None (occurrence: None)
  Receive Date: 20110121
  Receipt Date: 20110121
  Transmission Date: 20110831
  Serious: Yes (Other)
  Sender: FDA-Public Use
  Company Number: None

PATIENT
  Sex: Female

DRUGS (1)
  1. PRADAXA [Suspect]
     Indication: THROMBOSIS PROPHYLAXIS
     Dosage: 150 MG CAPSULES BID PO
     Route: 048
     Dates: start: 20101210, end: 20101228

REACTIONS (2)
  - SLEEP DISORDER [None]
  - OESOPHAGEAL PAIN [None]
